FAERS Safety Report 6239651-0 (Version None)
Quarter: 2009Q2

REPORT INFORMATION
  Report Type: 
  Country: None (occurrence: None)
  Receive Date: 20090622
  Receipt Date: 20090615
  Transmission Date: 20091009
  Serious: Yes (Other)
  Sender: FDA-Public Use
  Company Number: JP-MERCK-0906USA03158

PATIENT
  Age: 85 Year
  Sex: Female

DRUGS (5)
  1. STROMECTOL [Suspect]
     Indication: ACARODERMATITIS
     Route: 048
     Dates: start: 20090528, end: 20090528
  2. EURAX [Concomitant]
     Route: 061
     Dates: start: 20090525
  3. ANTIMICROBIAL (UNSPECIFIED) [Concomitant]
     Route: 065
  4. MYSER [Concomitant]
     Route: 061
     Dates: start: 20090525
  5. ALLELOCK [Concomitant]
     Route: 048
     Dates: start: 20090525

REACTIONS (1)
  - ERYTHEMA MULTIFORME [None]
